FAERS Safety Report 4602922-5 (Version None)
Quarter: 2005Q1

REPORT INFORMATION
  Report Type: 
  Country: None (occurrence: None)
  Receive Date: 20050307
  Receipt Date: 20050228
  Transmission Date: 20050727
  Serious: Yes (Hospitalization)
  Sender: FDA-Public Use
  Company Number: 200510152BNE

PATIENT
  Age: 55 Year
  Sex: Female

DRUGS (3)
  1. ASPIRIN [Suspect]
     Dosage: 300 MG, TOTAL DAILY
  2. NITROGLYCERIN [Concomitant]
  3. DIAMORPHINE [Concomitant]

REACTIONS (5)
  - ARTERIOSPASM CORONARY [None]
  - CARDIAC DISORDER [None]
  - DYSPNOEA [None]
  - MYOCARDIAL INFARCTION [None]
  - URTICARIA GENERALISED [None]
